FAERS Safety Report 25283676 (Version 2)
Quarter: 2025Q2

REPORT INFORMATION
  Report Type: Spontaneous
  Country: US (occurrence: US)
  Receive Date: 20250508
  Receipt Date: 20250523
  Transmission Date: 20250716
  Serious: No
  Sender: X4 PHARMACEUTICALS
  Company Number: US-X4 PHARMACEUTICALS, INC-US-X4P-2024-000133

PATIENT
  Sex: Female

DRUGS (1)
  1. XOLREMDI [Suspect]
     Active Substance: MAVORIXAFOR
     Indication: Combined immunodeficiency
     Dosage: 400 MILLIGRAM, QD
     Route: 048
     Dates: start: 20240821

REACTIONS (2)
  - Product storage error [Unknown]
  - Product administration error [Unknown]
